FAERS Safety Report 17939101 (Version 1)
Quarter: 2020Q2

REPORT INFORMATION
  Report Type: Spontaneous
  Country: US (occurrence: US)
  Receive Date: 20200625
  Receipt Date: 20200625
  Transmission Date: 20200714
  Serious: No
  Sender: FDA-Public Use
  Company Number: US-TARO-2019TAR00561

PATIENT
  Sex: Female

DRUGS (1)
  1. AMMONIUM LACTATE LOTION 12% (BASE) [Suspect]
     Active Substance: AMMONIUM LACTATE
     Indication: RASH

REACTIONS (2)
  - Crying [Recovered/Resolved]
  - Paraesthesia [Recovered/Resolved]
